FAERS Safety Report 24053648 (Version 1)
Quarter: 2024Q3

REPORT INFORMATION
  Report Type: Spontaneous
  Country: CN (occurrence: CN)
  Receive Date: 20240705
  Receipt Date: 20240705
  Transmission Date: 20241017
  Serious: Yes (Hospitalization, Other)
  Sender: PARATEK PHARMACEUTICALS
  Company Number: CN-PARATEK PHARMACEUTICALS, INC.-2024PTK00522

PATIENT
  Age: 16 Year
  Sex: Male
  Weight: 69 kg

DRUGS (5)
  1. NUZYRA [Suspect]
     Active Substance: OMADACYCLINE
     Indication: Pneumonia
     Dosage: 0.2 G, 1X/DAY
     Route: 041
     Dates: start: 20240613, end: 20240613
  2. NUZYRA [Suspect]
     Active Substance: OMADACYCLINE
     Dosage: 0.1 G, 1X/DAY
     Route: 041
     Dates: start: 20240614, end: 20240619
  3. AMBROXOL [Suspect]
     Active Substance: AMBROXOL
     Indication: Pneumonia
     Dosage: 30 MG, 2X/DAY
     Route: 041
     Dates: start: 20240613, end: 20240619
  4. AMBROXOL [Suspect]
     Active Substance: AMBROXOL
     Indication: Productive cough
  5. OSELTAMIVIR PHOSPHATE [Concomitant]
     Active Substance: OSELTAMIVIR PHOSPHATE
     Dosage: 75 MG, 2X/DAY
     Route: 048
     Dates: start: 20240614, end: 20240619

REACTIONS (5)
  - Type IV hypersensitivity reaction [Recovering/Resolving]
  - Erythema [Recovering/Resolving]
  - Papule [Recovering/Resolving]
  - Pruritus [Recovering/Resolving]
  - Off label use [Recovered/Resolved]

NARRATIVE: CASE EVENT DATE: 20240601
